FAERS Safety Report 20641106 (Version 4)
Quarter: 2022Q2

REPORT INFORMATION
  Report Type: Report from Study
  Country: CL (occurrence: CL)
  Receive Date: 20220327
  Receipt Date: 20220428
  Transmission Date: 20220720
  Serious: Yes (Other)
  Sender: FDA-Public Use
  Company Number: CL-NOVARTISPH-NVSC2022CL034099

PATIENT
  Age: 55 Year
  Sex: Female

DRUGS (6)
  1. KISQALI [Suspect]
     Active Substance: RIBOCICLIB
     Indication: Product used for unknown indication
     Dosage: UNK
     Route: 065
  2. ZOMETA [Suspect]
     Active Substance: ZOLEDRONIC ACID
     Indication: Product used for unknown indication
     Dosage: UNK
     Route: 065
  3. PIQRAY [Suspect]
     Active Substance: ALPELISIB
     Indication: Breast cancer
     Dosage: 300 MG, QD (STOPPED DATE 02 MAR)
     Route: 048
     Dates: start: 20220204
  4. PIQRAY [Suspect]
     Active Substance: ALPELISIB
     Dosage: 300 MG, QD
     Route: 048
     Dates: start: 20220205, end: 20220228
  5. PIQRAY [Suspect]
     Active Substance: ALPELISIB
     Dosage: 400 MG, QD
     Route: 048
     Dates: start: 20220204, end: 202202
  6. FULVESTRANT [Suspect]
     Active Substance: FULVESTRANT
     Indication: Product used for unknown indication
     Dosage: UNK
     Route: 065

REACTIONS (24)
  - Liver injury [Not Recovered/Not Resolved]
  - Blood alkaline phosphatase increased [Unknown]
  - Aspartate aminotransferase increased [Unknown]
  - Gamma-glutamyltransferase increased [Unknown]
  - Pleural effusion [Not Recovered/Not Resolved]
  - Feeling abnormal [Unknown]
  - Hyperglycaemia [Unknown]
  - Red cell distribution width abnormal [Unknown]
  - Monocyte count abnormal [Unknown]
  - Red blood cell sedimentation rate increased [Unknown]
  - Anisocytosis [Unknown]
  - Elliptocytosis [Unknown]
  - Poikilocytosis [Unknown]
  - Rouleaux formation [Unknown]
  - Glomerular filtration rate abnormal [Unknown]
  - Blood lactate dehydrogenase increased [Unknown]
  - Agitation [Unknown]
  - Thyroxine decreased [Unknown]
  - Abdominal pain upper [Unknown]
  - Vomiting [Unknown]
  - Decreased appetite [Unknown]
  - Blood albumin decreased [Unknown]
  - Blood creatinine increased [Unknown]
  - Back pain [Unknown]

NARRATIVE: CASE EVENT DATE: 20220205
